FAERS Safety Report 7114233-7 (Version None)
Quarter: 2010Q4

REPORT INFORMATION
  Report Type: 
  Country: None (occurrence: None)
  Receive Date: 20101119
  Receipt Date: 20101110
  Transmission Date: 20110411
  Serious: Yes (Hospitalization)
  Sender: FDA-Public Use
  Company Number: DE-ROCHE-740400

PATIENT
  Sex: Male
  Weight: 90 kg

DRUGS (2)
  1. CAPECITABINE [Suspect]
     Indication: RECTAL CANCER
     Dosage: 1000 MG/M2, BID, D1-D15 OF 3 WEEK CYCLE
     Route: 048
     Dates: start: 20100212, end: 20100722
  2. ELOXATIN [Suspect]
     Indication: RECTAL CANCER
     Dosage: 50 MG/M2 ON D1, 8, 15, 22 AND 29
     Route: 042
     Dates: start: 20100212, end: 20100312

REACTIONS (2)
  - INFECTION [None]
  - WOUND COMPLICATION [None]
